FAERS Safety Report 21280809 (Version 1)
Quarter: 2022Q3

REPORT INFORMATION
  Report Type: Spontaneous
  Country: US (occurrence: US)
  Receive Date: 20220901
  Receipt Date: 20220901
  Transmission Date: 20221027
  Serious: Yes (Other)
  Sender: FDA-Public Use
  Company Number: US-MYLANLABS-2022M1090470

PATIENT
  Age: 57 Year
  Sex: Female

DRUGS (2)
  1. ZOLEDRONIC ACID [Suspect]
     Active Substance: ZOLEDRONIC ACID
     Indication: Hypercalcaemia of malignancy
     Dosage: UNK
     Route: 065
  2. CALCITONIN [Concomitant]
     Active Substance: CALCITONIN
     Indication: Hypercalcaemia of malignancy
     Dosage: UNK
     Route: 058

REACTIONS (1)
  - Drug ineffective [Unknown]
